FAERS Safety Report 5051439-5 (Version None)
Quarter: 2006Q3

REPORT INFORMATION
  Report Type: 
  Country: None (occurrence: None)
  Receive Date: 20060714
  Receipt Date: 20060704
  Transmission Date: 20061208
  Serious: Yes (Hospitalization)
  Sender: FDA-Public Use
  Company Number: PHBS2006TH09912

PATIENT
  Sex: Female

DRUGS (2)
  1. EXJADE [Suspect]
     Indication: BLOOD IRON INCREASED
     Dosage: 20 MG/KG/D
     Route: 048
     Dates: start: 20060418
  2. INDERAL [Concomitant]
     Dosage: 1 X 3
     Route: 065

REACTIONS (2)
  - ERYTHEMA MULTIFORME [None]
  - SKIN LESION [None]
